FAERS Safety Report 23974629 (Version 1)
Quarter: 2024Q2

REPORT INFORMATION
  Report Type: Spontaneous
  Country: US (occurrence: US)
  Receive Date: 20240614
  Receipt Date: 20240614
  Transmission Date: 20240716
  Serious: Yes (Hospitalization)
  Sender: FDA-Public Use
  Company Number: US-AKCEA THERAPEUTICS, INC.-2024IS005457

PATIENT

DRUGS (8)
  1. TEGSEDI [Suspect]
     Active Substance: INOTERSEN SODIUM
     Indication: Hereditary neuropathic amyloidosis
     Dosage: 284 MILLIGRAM (1.5 ML), QW
     Route: 058
     Dates: start: 20200911, end: 20210128
  2. TEGSEDI [Suspect]
     Active Substance: INOTERSEN SODIUM
     Dosage: 284 MILLIGRAM (1.5 ML), QW
     Route: 058
  3. ASPIRIN AND DIPYRIDAMOLE [Concomitant]
     Active Substance: ASPIRIN\DIPYRIDAMOLE
     Indication: Product used for unknown indication
     Dosage: UNK, (ER)
     Route: 065
  4. ATORVASTATIN CALCIUM [Concomitant]
     Active Substance: ATORVASTATIN CALCIUM
     Indication: Product used for unknown indication
     Dosage: UNK
     Route: 065
  5. PREGABALIN [Concomitant]
     Active Substance: PREGABALIN
     Indication: Product used for unknown indication
     Dosage: UNK
     Route: 065
  6. OXYBUTYNIN CHLORIDE [Concomitant]
     Active Substance: OXYBUTYNIN CHLORIDE
     Indication: Product used for unknown indication
     Dosage: UNK
     Route: 065
  7. DESMOPRESSIN ACETATE [Concomitant]
     Active Substance: DESMOPRESSIN ACETATE
     Indication: Product used for unknown indication
     Dosage: UNK
     Route: 065
  8. TORSEMIDE [Concomitant]
     Active Substance: TORSEMIDE
     Indication: Product used for unknown indication
     Dosage: UNK
     Route: 065

REACTIONS (14)
  - Fluid retention [Unknown]
  - Oedema peripheral [Not Recovered/Not Resolved]
  - Pain [Unknown]
  - Malaise [Recovering/Resolving]
  - Hypophagia [Recovering/Resolving]
  - Dry skin [Recovering/Resolving]
  - Increased appetite [Recovering/Resolving]
  - Pain in extremity [Not Recovered/Not Resolved]
  - Fatigue [Unknown]
  - Abdominal distension [Unknown]
  - Paraesthesia [Unknown]
  - Pruritus [Recovering/Resolving]
  - Decreased appetite [Unknown]
  - Drug ineffective [Recovering/Resolving]

NARRATIVE: CASE EVENT DATE: 20201113
